FAERS Safety Report 6595915-2 (Version None)
Quarter: 2010Q1

REPORT INFORMATION
  Report Type: 
  Country: None (occurrence: None)
  Receive Date: 20100223
  Receipt Date: 20100217
  Transmission Date: 20100710
  Serious: Yes (Death)
  Sender: FDA-Public Use
  Company Number: CA-CELGENEUS-028-21880-10011985

PATIENT
  Sex: Female

DRUGS (1)
  1. REVLIMID [Suspect]
     Indication: PRIMARY MEDIASTINAL LARGE B-CELL LYMPHOMA REFRACTORY
     Route: 048
     Dates: start: 20091118, end: 20100101

REACTIONS (1)
  - NEOPLASM PROGRESSION [None]
